FAERS Safety Report 8862348 (Version 1)
Quarter: 2012Q4

REPORT INFORMATION
  Report Type: 
  Country: JP (occurrence: JP)
  Receive Date: 20121026
  Receipt Date: 20121026
  Transmission Date: 20130627
  Serious: Yes (Death, Other)
  Sender: FDA-Public Use
  Company Number: JP-BAYER-2012-109662

PATIENT

DRUGS (4)
  1. NIFEDIPINE [Suspect]
     Route: 064
  2. METHYLDOPA [Concomitant]
     Route: 064
  3. HYDRALAZINE HYDROCHLORIDE [Concomitant]
     Route: 064
  4. EPLERENONE [Concomitant]
     Route: 064

REACTIONS (1)
  - Foetal growth restriction [Fatal]
